FAERS Safety Report 5870955-7 (Version None)
Quarter: 2008Q3

REPORT INFORMATION
  Report Type: 
  Country: None (occurrence: None)
  Receive Date: 20080904
  Receipt Date: 20080826
  Transmission Date: 20090109
  Serious: Yes (Other)
  Sender: FDA-Public Use
  Company Number: DE-ABBOTT-08P-062-0472675-02

PATIENT
  Sex: Female

DRUGS (6)
  1. HUMIRA [Suspect]
     Indication: RHEUMATOID ARTHRITIS
     Route: 058
     Dates: start: 20031002, end: 20060607
  2. METHOTREXATE [Concomitant]
     Indication: RHEUMATOID ARTHRITIS
  3. FOLIC ACID [Concomitant]
     Indication: VITAMIN SUPPLEMENTATION
     Dosage: ONCE A DAY EXPCEPT MTX DAY
  4. TRAMADOL HCL [Concomitant]
     Indication: RHEUMATOID ARTHRITIS
  5. PANTOPRAZOLE SODIUM [Concomitant]
     Indication: REFLUX OESOPHAGITIS
  6. BISOPROLOL FUMARATE [Concomitant]
     Indication: HYPERTENSION

REACTIONS (1)
  - LEUKOENCEPHALOPATHY [None]
